FAERS Safety Report 9644016 (Version 2)
Quarter: 2013Q4

REPORT INFORMATION
  Report Type: Spontaneous
  Country: US (occurrence: US)
  Receive Date: 20131024
  Receipt Date: 20131029
  Transmission Date: 20140711
  Serious: Yes (Other)
  Sender: FDA-Public Use
  Company Number: US-BAXTER-2013BAX041308

PATIENT
  Sex: Male

DRUGS (1)
  1. CYCLOPHOSPHAMIDE FOR INJECTION, USP [Suspect]
     Indication: MULTIPLE SCLEROSIS
     Route: 042
     Dates: start: 1992, end: 1993

REACTIONS (1)
  - Progressive multiple sclerosis [Not Recovered/Not Resolved]
